FAERS Safety Report 8351265-5 (Version None)
Quarter: 2012Q2

REPORT INFORMATION
  Report Type: 
  Country: None (occurrence: None)
  Receive Date: 20120510
  Receipt Date: 20120508
  Transmission Date: 20120825
  Serious: Yes (Other)
  Sender: FDA-Public Use
  Company Number: US-PFIZER INC-2012110979

PATIENT
  Sex: Female
  Weight: 52.154 kg

DRUGS (3)
  1. CELEBREX [Concomitant]
     Indication: ARTHRITIS
     Dosage: UNK
  2. LYRICA [Suspect]
     Indication: NEURALGIA
     Dosage: UNK
  3. LYRICA [Suspect]
     Indication: SPINAL DISORDER
     Dosage: 75 MG, 2X/DAY
     Route: 048
     Dates: start: 20090801, end: 20111001

REACTIONS (5)
  - THINKING ABNORMAL [None]
  - DRUG INTOLERANCE [None]
  - DRUG INEFFECTIVE [None]
  - DISORIENTATION [None]
  - MOOD ALTERED [None]
